FAERS Safety Report 4513049-5 (Version None)
Quarter: 2004Q4

REPORT INFORMATION
  Report Type: 
  Country: None (occurrence: None)
  Receive Date: 20041124
  Receipt Date: 20041124
  Transmission Date: 20050328
  Serious: Yes (Other)
  Sender: FDA-Public Use
  Company Number: None

PATIENT
  Age: 77 Year
  Sex: Female

DRUGS (1)
  1. VIOXX [Suspect]
     Dosage: ONCE A DAY ORALLY
     Route: 048

REACTIONS (3)
  - ARTHRALGIA [None]
  - CARDIAC DISORDER [None]
  - THROMBOSIS [None]
